FAERS Safety Report 9941804 (Version 1)
Quarter: 2014Q1

REPORT INFORMATION
  Report Type: Report from Study
  Country: US (occurrence: US)
  Receive Date: 20140303
  Receipt Date: 20140303
  Transmission Date: 20141002
  Serious: No
  Sender: FDA-Public Use
  Company Number: US-ABBVIE-13P-163-1038385-00

PATIENT
  Age: 35 Year
  Sex: Male
  Weight: 97.61 kg

DRUGS (2)
  1. HUMIRA [Suspect]
     Indication: RHEUMATOID ARTHRITIS
     Route: 058
     Dates: start: 201206
  2. PLAQUENIL [Suspect]
     Indication: RHEUMATOID ARTHRITIS
     Dates: start: 201212, end: 20130116

REACTIONS (5)
  - Lip swelling [Not Recovered/Not Resolved]
  - Respiratory disorder [Recovered/Resolved]
  - Local swelling [Not Recovered/Not Resolved]
  - Urticaria [Recovering/Resolving]
  - Respiratory disorder [Recovered/Resolved]
